FAERS Safety Report 5798229-3 (Version None)
Quarter: 2008Q3

REPORT INFORMATION
  Report Type: 
  Country: None (occurrence: None)
  Receive Date: 20080702
  Receipt Date: 20080625
  Transmission Date: 20090109
  Serious: Yes (Other)
  Sender: FDA-Public Use
  Company Number: D0057753A

PATIENT
  Age: 40 Year
  Sex: Male

DRUGS (1)
  1. ZEFFIX [Suspect]
     Dosage: 100MG PER DAY
     Route: 048
     Dates: start: 20030401

REACTIONS (2)
  - FORMICATION [None]
  - POLYNEUROPATHY [None]
